FAERS Safety Report 18940305 (Version 1)
Quarter: 2021Q1

REPORT INFORMATION
  Report Type: Spontaneous
  Country: US (occurrence: US)
  Receive Date: 20210225
  Receipt Date: 20210225
  Transmission Date: 20210420
  Serious: No
  Sender: FDA-Public Use
  Company Number: US-ASTRAZENECA-2021A071207

PATIENT
  Sex: Male

DRUGS (2)
  1. BRILINTA [Suspect]
     Active Substance: TICAGRELOR
     Indication: STENT PLACEMENT
     Route: 048
  2. INSULIN [Concomitant]
     Active Substance: INSULIN NOS

REACTIONS (8)
  - Pain in extremity [Unknown]
  - Abdominal pain upper [Unknown]
  - Dyspnoea [Unknown]
  - Illness [Unknown]
  - Tooth infection [Unknown]
  - Asthenia [Unknown]
  - Tooth disorder [Unknown]
  - Cardiac disorder [Unknown]
